FAERS Safety Report 19116483 (Version 1)
Quarter: 2021Q2

REPORT INFORMATION
  Report Type: Report from Study
  Country: US (occurrence: US)
  Receive Date: 20210409
  Receipt Date: 20210409
  Transmission Date: 20210717
  Serious: Yes (Hospitalization, Other)
  Sender: FDA-Public Use
  Company Number: US-UCBSA-2021003858

PATIENT
  Age: 72 Year
  Sex: Male

DRUGS (2)
  1. MIDAZOLAM. [Suspect]
     Active Substance: MIDAZOLAM
     Indication: SEIZURE
     Dosage: 5MG 1ML IN NOSE
     Dates: end: 202103
  2. MIDAZOLAM. [Suspect]
     Active Substance: MIDAZOLAM
     Dosage: 5MG 1ML IN NOSE

REACTIONS (4)
  - Respiratory disorder [Not Recovered/Not Resolved]
  - Seizure [Not Recovered/Not Resolved]
  - Therapy interrupted [Unknown]
  - Product availability issue [Unknown]

NARRATIVE: CASE EVENT DATE: 20210125
